FAERS Safety Report 8456000-8 (Version None)
Quarter: 2012Q2

REPORT INFORMATION
  Report Type: 
  Country: None (occurrence: None)
  Receive Date: 20120621
  Receipt Date: 20120617
  Transmission Date: 20120825
  Serious: Yes (Other)
  Sender: FDA-Public Use
  Company Number: CN-ROCHE-1072679

PATIENT
  Age: 31 Year
  Sex: Female
  Weight: 54 kg

DRUGS (4)
  1. PACLITAXEL [Concomitant]
     Indication: LUNG ADENOCARCINOMA
     Dates: start: 20110701, end: 20111201
  2. TARCEVA [Suspect]
     Indication: LUNG ADENOCARCINOMA
     Route: 048
     Dates: start: 20120418
  3. DEXAMETHASONE (NON-ROCHE/NON-COMPARATOR) [Concomitant]
     Indication: LUNG ADENOCARCINOMA
     Dates: start: 20110701, end: 20111201
  4. AVASTIN [Suspect]
     Indication: LUNG ADENOCARCINOMA
     Route: 041
     Dates: start: 20110701, end: 20120401

REACTIONS (9)
  - AMENORRHOEA [None]
  - ARTHRALGIA [None]
  - NAUSEA [None]
  - DIPLOPIA [None]
  - DIZZINESS [None]
  - VOMITING [None]
  - RASH [None]
  - BLOOD ALKALINE PHOSPHATASE INCREASED [None]
  - ASTHENIA [None]
